FAERS Safety Report 9447971 (Version 1)
Quarter: 2013Q3

REPORT INFORMATION
  Report Type: Spontaneous
  Country: US (occurrence: None)
  Receive Date: 20130807
  Receipt Date: 20130807
  Transmission Date: 20140515
  Serious: No
  Sender: FDA-Public Use
  Company Number: None

PATIENT
  Sex: Male

DRUGS (1)
  1. DUREZOL [Suspect]
     Indication: CATARACT
     Dosage: 1 DROPS FOUR TIMES DAILY INTO THE EYE
     Dates: start: 20130227, end: 20130315

REACTIONS (5)
  - Vision blurred [None]
  - Intraocular pressure increased [None]
  - Corneal scar [None]
  - Blister [None]
  - Corneal disorder [None]
